FAERS Safety Report 11614415 (Version 1)
Quarter: 2015Q4

REPORT INFORMATION
  Report Type: Spontaneous
  Country: BE (occurrence: BE)
  Receive Date: 20151009
  Receipt Date: 20151009
  Transmission Date: 20160304
  Serious: Yes (Other)
  Sender: FDA-Public Use
  Company Number: BE-ROCHE-1638920

PATIENT
  Sex: Female

DRUGS (3)
  1. TOTALIP [Concomitant]
     Active Substance: ATORVASTATIN
     Route: 048
  2. PANTOMED (BELGIUM) [Concomitant]
     Route: 048
  3. AVASTIN [Suspect]
     Active Substance: BEVACIZUMAB
     Indication: OVARIAN CANCER
     Dosage: AVASTIN IN MAINTENANCE THERAPY
     Route: 042
     Dates: start: 20140425, end: 20150605

REACTIONS (6)
  - Periodontitis [Not Recovered/Not Resolved]
  - Tongue ulceration [Not Recovered/Not Resolved]
  - Skin fissures [Not Recovered/Not Resolved]
  - Gingivitis [Not Recovered/Not Resolved]
  - Fatigue [Not Recovered/Not Resolved]
  - Dry skin [Not Recovered/Not Resolved]

NARRATIVE: CASE EVENT DATE: 20141229
